FAERS Safety Report 7543632-4 (Version None)
Quarter: 2011Q2

REPORT INFORMATION
  Report Type: 
  Country: None (occurrence: None)
  Receive Date: 20110613
  Receipt Date: 20030311
  Transmission Date: 20111010
  Serious: Yes (Hospitalization)
  Sender: FDA-Public Use
  Company Number: PHHO2003CA02697

PATIENT
  Sex: Male

DRUGS (2)
  1. RISPERIDONE [Concomitant]
     Dosage: 6 MG, QD
  2. CLOZARIL [Suspect]
     Dosage: 600 MG, QD
     Dates: start: 20010927

REACTIONS (4)
  - OESOPHAGITIS [None]
  - GASTROINTESTINAL HAEMORRHAGE [None]
  - GASTROOESOPHAGEAL REFLUX DISEASE [None]
  - GASTRITIS [None]
